FAERS Safety Report 7180164-X (Version None)
Quarter: 2010Q4

REPORT INFORMATION
  Report Type: 
  Country: None (occurrence: None)
  Receive Date: 20101221
  Receipt Date: 20101213
  Transmission Date: 20110411
  Serious: Yes (Other)
  Sender: FDA-Public Use
  Company Number: FR-CEPHALON-2010006250

PATIENT
  Sex: Female

DRUGS (2)
  1. MODAFINIL [Suspect]
     Indication: HYPERSOMNIA
     Route: 048
     Dates: start: 20100713, end: 20100701
  2. MODAFINIL [Suspect]
     Route: 048
     Dates: start: 20100101, end: 20101202

REACTIONS (3)
  - DRUG PRESCRIBING ERROR [None]
  - HYPERSENSITIVITY [None]
  - URTICARIA [None]
